FAERS Safety Report 14407826 (Version 3)
Quarter: 2018Q2

REPORT INFORMATION
  Report Type: Report from Study
  Country: US (occurrence: US)
  Receive Date: 20180118
  Receipt Date: 20180502
  Transmission Date: 20180711
  Serious: Yes (Hospitalization, Other)
  Sender: FDA-Public Use
  Company Number: US-SAOL THERAPEUTICS-2018SAO00045

PATIENT
  Age: 76 Year
  Sex: Male
  Weight: 94.24 kg

DRUGS (43)
  1. HYDROMORPHONE [Suspect]
     Active Substance: HYDROMORPHONE
     Dosage: 127.79 ?G, \DAY; MAX DOSE
     Route: 037
     Dates: start: 20171005, end: 20171017
  2. COMPOUNDED BACLOFEN [Suspect]
     Active Substance: BACLOFEN
     Dosage: 135.13 ?G, \DAY
     Route: 037
     Dates: start: 20180109
  3. BUPIVACAINE. [Suspect]
     Active Substance: BUPIVACAINE
     Dosage: 12.611 MG, \DAY; MAX DOSE
     Route: 037
     Dates: start: 20171017, end: 20171024
  4. BUPIVACAINE. [Suspect]
     Active Substance: BUPIVACAINE
     Dosage: 11.280 MG, \DAY; MAX DOSE
     Route: 037
     Dates: start: 20171024, end: 20171026
  5. HYDROMORPHONE [Suspect]
     Active Substance: HYDROMORPHONE
     Dosage: 75.131 ?G, \DAY; MAX DOSE
     Route: 037
     Dates: start: 20171005, end: 20171017
  6. COMPOUNDED BACLOFEN [Suspect]
     Active Substance: BACLOFEN
     Dosage: 110.11 ?G, \DAY
     Route: 037
     Dates: start: 20171114
  7. COMPOUNDED BACLOFEN [Suspect]
     Active Substance: BACLOFEN
     Dosage: 159.24 ?G, \DAY; MAX DOSE
     Route: 037
     Dates: start: 20171114
  8. COMPOUNDED BACLOFEN [Suspect]
     Active Substance: BACLOFEN
     Dosage: 95.30 ?G, \DAY; MAX DOSE
     Route: 037
     Dates: start: 20171017
  9. HYDROMORPHONE [Suspect]
     Active Substance: HYDROMORPHONE
     Dosage: 72.634 ?G, \DAY
     Route: 037
     Dates: start: 20171005, end: 20171017
  10. COMPOUNDED BACLOFEN [Suspect]
     Active Substance: BACLOFEN
     Dosage: 74.94 ?G, \DAY
     Route: 037
     Dates: start: 20171024, end: 20171026
  11. COMPOUNDED BACLOFEN [Suspect]
     Active Substance: BACLOFEN
     Dosage: 112.80 ?G, \DAY; MAX DOSE
     Route: 037
     Dates: start: 20171024, end: 20171026
  12. COMPOUNDED BACLOFEN [Suspect]
     Active Substance: BACLOFEN
     Dosage: 49.96 ?G, \DAY
     Route: 037
     Dates: start: 20171005, end: 20171017
  13. BUPIVACAINE. [Suspect]
     Active Substance: BUPIVACAINE
     Dosage: 11.011 MG, \DAY
     Route: 037
     Dates: start: 20171114
  14. BUPIVACAINE. [Suspect]
     Active Substance: BUPIVACAINE
     Dosage: 15.924 MG, \DAY; MAX DOSE
     Route: 037
     Dates: start: 20171114
  15. BUPIVACAINE. [Suspect]
     Active Substance: BUPIVACAINE
     Dosage: 8.599 MG, \DAY
     Route: 037
     Dates: start: 20171005, end: 20171017
  16. HYDROMORPHONE [Suspect]
     Active Substance: HYDROMORPHONE
     Dosage: 149.87 ?G, \DAY
     Route: 037
     Dates: start: 20171024, end: 20171026
  17. HYDROMORPHONE [Suspect]
     Active Substance: HYDROMORPHONE
     Dosage: 225.60 ?G, \DAY; MAX DOSE
     Route: 037
     Dates: start: 20171024, end: 20171026
  18. HYDROMORPHONE [Suspect]
     Active Substance: HYDROMORPHONE
     Dosage: 180.88 ?G, \DAY
     Route: 037
     Dates: start: 20171026, end: 20171114
  19. COMPOUNDED BACLOFEN [Suspect]
     Active Substance: BACLOFEN
     Dosage: 63.90 ?G, \DAY; MAX DOSE
     Route: 037
     Dates: start: 20171005, end: 20171017
  20. HYDROMORPHONE [Suspect]
     Active Substance: HYDROMORPHONE
     Dosage: 124.89 ?G, \DAY
     Route: 037
     Dates: start: 20171017
  21. BUPIVACAINE. [Suspect]
     Active Substance: BUPIVACAINE
     Dosage: 7.494 MG, \DAY
     Route: 037
     Dates: start: 20171005, end: 20171017
  22. BUPIVACAINE. [Suspect]
     Active Substance: BUPIVACAINE
     Dosage: 9.044 MG, \DAY
     Route: 037
     Dates: start: 20171026, end: 20171114
  23. BUPIVACAINE. [Suspect]
     Active Substance: BUPIVACAINE
     Dosage: 13.513 MG, \DAY
     Route: 037
     Dates: start: 20180109
  24. BUPIVACAINE. [Suspect]
     Active Substance: BUPIVACAINE
     Dosage: 8.895 MG, \DAY; MAX DOSE
     Route: 037
     Dates: start: 20171005, end: 20171017
  25. HYDROMORPHONE [Suspect]
     Active Substance: HYDROMORPHONE
     Dosage: 220.23 ?G, \DAY
     Route: 037
     Dates: start: 20171114
  26. HYDROMORPHONE [Suspect]
     Active Substance: HYDROMORPHONE
     Dosage: 318.48 ?G, \DAY; MAX DOSE
     Route: 037
     Dates: start: 20171114
  27. HYDROMORPHONE [Suspect]
     Active Substance: HYDROMORPHONE
     Dosage: 99.91 ?G, \DAY
     Route: 037
     Dates: start: 20171005, end: 20171017
  28. BUPIVACAINE. [Suspect]
     Active Substance: BUPIVACAINE
     Dosage: 14.295 MG, \DAY; MAX DOSE
     Route: 037
     Dates: start: 20171017, end: 20171024
  29. BUPIVACAINE. [Suspect]
     Active Substance: BUPIVACAINE
     Dosage: 12.913 MG, \DAY; MAX DOSE
     Route: 037
     Dates: start: 20171026, end: 20171114
  30. BUPIVACAINE. [Suspect]
     Active Substance: BUPIVACAINE
     Dosage: 20.388 MG, \DAY; MAX DOSE
     Route: 037
     Dates: start: 20180109
  31. COMPOUNDED BACLOFEN [Suspect]
     Active Substance: BACLOFEN
     Indication: SPINAL PAIN
     Route: 037
  32. HYDROMORPHONE [Suspect]
     Active Substance: HYDROMORPHONE
     Dosage: 450.4 ?G, \DAY
     Route: 037
     Dates: start: 20180109
  33. HYDROMORPHONE [Suspect]
     Active Substance: HYDROMORPHONE
     Dosage: 679.6 ?G, \DAY; MAX DOSE
     Route: 037
     Dates: start: 20180109
  34. HYDROMORPHONE [Suspect]
     Active Substance: HYDROMORPHONE
     Dosage: 168.15 ?G, \DAY; MAX DOSE
     Route: 037
     Dates: start: 20171017
  35. HYDROMORPHONE [Suspect]
     Active Substance: HYDROMORPHONE
     Dosage: 258.26 ?G, \DAY; MAX DOSE
     Route: 037
     Dates: start: 20171026, end: 20171114
  36. COMPOUNDED BACLOFEN [Suspect]
     Active Substance: BACLOFEN
     Dosage: 203.88 ?G, \DAY; ; MAX DOSE
     Route: 037
     Dates: start: 20180109
  37. COMPOUNDED BACLOFEN [Suspect]
     Active Substance: BACLOFEN
     Dosage: 62.45 ?G, \DAY
     Route: 037
     Dates: start: 20171017
  38. COMPOUNDED BACLOFEN [Suspect]
     Active Substance: BACLOFEN
     Dosage: 84.07 ?G, \DAY; MAX DOSE
     Route: 037
     Dates: start: 20171017
  39. HYDROMORPHONE [Suspect]
     Active Substance: HYDROMORPHONE
     Dosage: 190.60 ?G, \DAY; MAX DOSE
     Route: 037
     Dates: start: 20171017
  40. BUPIVACAINE. [Suspect]
     Active Substance: BUPIVACAINE
     Dosage: 9.584 MG, \DAY; MAX DOSE
     Route: 037
     Dates: start: 20171005, end: 20171017
  41. BUPIVACAINE. [Suspect]
     Active Substance: BUPIVACAINE
     Dosage: 9.367 MG, \DAY
     Route: 037
     Dates: start: 20171017, end: 20171024
  42. COMPOUNDED BACLOFEN [Suspect]
     Active Substance: BACLOFEN
     Dosage: 90.44 ?G, \DAY
     Route: 037
     Dates: start: 20171026, end: 20171114
  43. COMPOUNDED BACLOFEN [Suspect]
     Active Substance: BACLOFEN
     Dosage: 129.13 ?G, \DAY; MAX DOSE
     Route: 037
     Dates: start: 20171026, end: 20171114

REACTIONS (13)
  - Arthritis [Unknown]
  - Burning sensation [Recovered/Resolved]
  - Muscular weakness [Recovered/Resolved]
  - Pain [Recovered/Resolved]
  - Asthenia [Recovered/Resolved]
  - Dizziness [Recovered/Resolved]
  - Nausea [Not Recovered/Not Resolved]
  - Back pain [Unknown]
  - Vomiting [Recovered/Resolved]
  - Device kink [Recovered/Resolved]
  - Somnolence [Recovered/Resolved]
  - Drug ineffective for unapproved indication [Unknown]
  - Fall [Unknown]

NARRATIVE: CASE EVENT DATE: 2017
